FAERS Safety Report 18538818 (Version 1)
Quarter: 2020Q4

REPORT INFORMATION
  Report Type: Spontaneous
  Country: GB (occurrence: GB)
  Receive Date: 20201124
  Receipt Date: 20201124
  Transmission Date: 20210114
  Serious: Yes (Other)
  Sender: FDA-Public Use
  Company Number: GB-ACCORD-208948

PATIENT
  Age: 35 Year
  Sex: Female
  Weight: 66.22 kg

DRUGS (2)
  1. AMITRIPTYLINE [Suspect]
     Active Substance: AMITRIPTYLINE
     Indication: FIBROMYALGIA
     Route: 048
     Dates: start: 20100924, end: 20101029
  2. THYROXINE [Concomitant]
     Active Substance: LEVOTHYROXINE

REACTIONS (8)
  - Feeling cold [Unknown]
  - Decreased appetite [Unknown]
  - Tachyphrenia [Unknown]
  - Hyperhidrosis [Unknown]
  - Insomnia [Unknown]
  - Paranoia [Recovered/Resolved with Sequelae]
  - Stereotypy [Unknown]
  - Anxiety [Unknown]

NARRATIVE: CASE EVENT DATE: 20201022
